FAERS Safety Report 8598533-X (Version None)
Quarter: 2012Q3

REPORT INFORMATION
  Report Type: 
  Country: None (occurrence: None)
  Receive Date: 20120816
  Receipt Date: 20120807
  Transmission Date: 20120928
  Serious: Yes (Hospitalization)
  Sender: FDA-Public Use
  Company Number: US-BAYER-2012-033477

PATIENT
  Age: 27 Year
  Sex: Female
  Weight: 92.971 kg

DRUGS (9)
  1. PHENERGAN HCL [Concomitant]
  2. YAZ [Suspect]
     Indication: CONTRACEPTION
     Dosage: UNK
     Route: 048
     Dates: start: 20091201, end: 20110101
  3. ALBUTEROL [Concomitant]
  4. ZYRTEC [Concomitant]
  5. TYLENOL [Concomitant]
  6. YAZ [Suspect]
     Indication: ACNE
  7. YAZ [Suspect]
     Indication: PREMENSTRUAL SYNDROME
  8. DROSPIRENONE AND ETHINYL ESTRADIOL [Suspect]
  9. MAXALT [Concomitant]

REACTIONS (5)
  - EMOTIONAL DISTRESS [None]
  - DEEP VEIN THROMBOSIS [None]
  - PAIN IN EXTREMITY [None]
  - THROMBOSIS [None]
  - INJURY [None]
